FAERS Safety Report 8494433-4 (Version None)
Quarter: 2012Q3

REPORT INFORMATION
  Report Type: 
  Country: None (occurrence: None)
  Receive Date: 20120709
  Receipt Date: 20120627
  Transmission Date: 20120928
  Serious: Yes (Hospitalization)
  Sender: FDA-Public Use
  Company Number: US-US-EMD SERONO, INC.-7144278

PATIENT
  Sex: Female

DRUGS (2)
  1. ALEVE [Concomitant]
     Indication: BACK PAIN
  2. REBIF [Suspect]
     Indication: MULTIPLE SCLEROSIS
     Route: 058
     Dates: start: 20120430

REACTIONS (6)
  - CONSTIPATION [None]
  - MEMORY IMPAIRMENT [None]
  - ASTHENIA [None]
  - MULTIPLE SCLEROSIS [None]
  - DIARRHOEA [None]
  - DISORIENTATION [None]
